FAERS Safety Report 11347938 (Version 1)
Quarter: 2015Q3

REPORT INFORMATION
  Report Type: Spontaneous
  Country: US (occurrence: US)
  Receive Date: 20150803
  Receipt Date: 20150803
  Transmission Date: 20151125
  Serious: No
  Sender: FDA-Public Use
  Company Number: US-ELI_LILLY_AND_COMPANY-US201112002197

PATIENT
  Age: 57 Year
  Sex: Female

DRUGS (3)
  1. LORAZEPAM. [Concomitant]
     Active Substance: LORAZEPAM
  2. ZYPREXA [Suspect]
     Active Substance: OLANZAPINE
     Indication: BIPOLAR DISORDER
     Dosage: 5 MG, UNK
     Dates: start: 20111203
  3. ZYPREXA [Suspect]
     Active Substance: OLANZAPINE
     Dosage: 2.5 MG, EACH EVENING

REACTIONS (12)
  - Agitation [Unknown]
  - Peripheral swelling [Unknown]
  - Insomnia [Unknown]
  - Nervousness [Unknown]
  - Depressed mood [Unknown]
  - Wrong technique in product usage process [Unknown]
  - Tremor [Unknown]
  - Heart rate increased [Unknown]
  - Hypertension [Unknown]
  - Thinking abnormal [Unknown]
  - Feeling jittery [Unknown]
  - Hyperhidrosis [Unknown]

NARRATIVE: CASE EVENT DATE: 20111204
